FAERS Safety Report 9026607 (Version 1)
Quarter: 2013Q1

REPORT INFORMATION
  Report Type: Spontaneous
  Country: US (occurrence: None)
  Receive Date: 20130114
  Receipt Date: 20130114
  Transmission Date: 20140127
  Serious: Yes (Death, Life-Threatening, Hospitalization, Other)
  Sender: FDA-Public Use
  Company Number: None

PATIENT
  Sex: Female
  Weight: 63.5 kg

DRUGS (2)
  1. LYRICA [Suspect]
     Indication: NEURALGIA
     Dosage: 200 MG  2 X DAILY
     Dates: start: 20111110, end: 20121007
  2. LYRICA [Suspect]
     Indication: DIABETES MELLITUS
     Dosage: 200 MG  2 X DAILY
     Dates: start: 20111110, end: 20121007

REACTIONS (3)
  - Brain injury [None]
  - Cardio-respiratory arrest [None]
  - Toxicity to various agents [None]
